FAERS Safety Report 7240329-5 (Version None)
Quarter: 2011Q1

REPORT INFORMATION
  Report Type: 
  Country: None (occurrence: None)
  Receive Date: 20110113
  Receipt Date: 20110103
  Transmission Date: 20110831
  Serious: Yes (Hospitalization)
  Sender: FDA-Public Use
  Company Number: LEO-2010-00953

PATIENT
  Age: 74 Year
  Sex: Male

DRUGS (10)
  1. INNOHEP (TINZAPARIN SODIUM) (20000 IU (INTERNATIONAL UNIT), INJECTION) [Suspect]
     Indication: PULMONARY EMBOLISM
     Dosage: 16000 IU (16000 IU, 1 IN 1 D), SUBCUTANEOUS
     Route: 058
     Dates: start: 20100905, end: 20100909
  2. BISOPROLOL FUMARATE [Concomitant]
  3. ALDACTONE [Concomitant]
  4. INIPOMP (PANTOPRAZOLE SODIUM) [Concomitant]
  5. ZOCOR [Concomitant]
  6. PREVISCAN (PENTOXIFYLLINE) [Concomitant]
  7. TAREG (VALSARTAN) [Concomitant]
  8. BUMETANIDE [Concomitant]
  9. HEPARIN CHOAY (HEPARIN SODIUM) (INJECTION) [Suspect]
     Indication: PULMONARY EMBOLISM
     Dosage: 3200 IU (3200 IU, 1 IN 1 D), INTRAVENOUS
     Route: 042
     Dates: start: 20100902, end: 20100905
  10. ZOLPIDEM TARTRATE [Concomitant]

REACTIONS (4)
  - PULMONARY EMBOLISM [None]
  - PULMONARY INFARCTION [None]
  - PURPURA [None]
  - LEUKOCYTOCLASTIC VASCULITIS [None]
